FAERS Safety Report 13512513 (Version 1)
Quarter: 2017Q2

REPORT INFORMATION
  Report Type: Spontaneous
  Country: US (occurrence: US)
  Receive Date: 20170504
  Receipt Date: 20170504
  Transmission Date: 20170830
  Serious: Yes (Death)
  Sender: FDA-Public Use
  Company Number: None

PATIENT
  Age: 45 Year
  Sex: Male

DRUGS (7)
  1. GENVOYA [Suspect]
     Active Substance: COBICISTAT\ELVITEGRAVIR\EMTRICITABINE\TENOFOVIR ALAFENAMIDE FUMARATE
     Indication: HIV INFECTION
     Dosage: 1 TABLET QD PO
     Route: 048
     Dates: start: 20161109
  2. GABAPENTIN. [Concomitant]
     Active Substance: GABAPENTIN
  3. LEVOFLOXACIN. [Concomitant]
     Active Substance: LEVOFLOXACIN
  4. DULOXETINE. [Concomitant]
     Active Substance: DULOXETINE
  5. SMZ/TMP [Concomitant]
     Active Substance: SULFAMETHOXAZOLE\TRIMETHOPRIM
  6. IBUPROFEN. [Concomitant]
     Active Substance: IBUPROFEN
  7. MORPHINE [Concomitant]
     Active Substance: MORPHINE

REACTIONS (1)
  - Death [None]
